FAERS Safety Report 12283506 (Version 1)
Quarter: 2016Q2

REPORT INFORMATION
  Report Type: Spontaneous
  Country: SE (occurrence: SE)
  Receive Date: 20160419
  Receipt Date: 20160419
  Transmission Date: 20160815
  Serious: Yes (Other)
  Sender: FDA-Public Use
  Company Number: SE-009507513-1604SWE010419

PATIENT
  Age: 57 Year
  Sex: Female

DRUGS (8)
  1. TROMBYL [Concomitant]
     Active Substance: ASPIRIN
  2. SELEGILINE [Concomitant]
     Active Substance: SELEGILINE
     Dosage: 10 MG DAILY
  3. METOPROLOL. [Concomitant]
     Active Substance: METOPROLOL
  4. CANDESARTAN CILEXETIL. [Concomitant]
     Active Substance: CANDESARTAN CILEXETIL
  5. SIMVASTATIN. [Concomitant]
     Active Substance: SIMVASTATIN
  6. EZETROL 10 MG TABLETTER [Suspect]
     Active Substance: EZETIMIBE
     Indication: LIPIDS INCREASED
     Route: 048
     Dates: start: 20151119, end: 20160208
  7. MADOPARK [Concomitant]
     Active Substance: BENSERAZIDE HYDROCHLORIDE\LEVODOPA
  8. DESONIX [Concomitant]

REACTIONS (1)
  - Psoriasis [Not Recovered/Not Resolved]

NARRATIVE: CASE EVENT DATE: 201512
